FAERS Safety Report 20977475 (Version 3)
Quarter: 2022Q4

REPORT INFORMATION
  Report Type: Spontaneous
  Country: US (occurrence: US)
  Receive Date: 20220618
  Receipt Date: 20221213
  Transmission Date: 20230113
  Serious: No
  Sender: FDA-Public Use
  Company Number: US-BRISTOL-MYERS SQUIBB COMPANY-2022-055606

PATIENT
  Age: 80 Year
  Sex: Male

DRUGS (3)
  1. REVLIMID [Suspect]
     Active Substance: LENALIDOMIDE
     Indication: Plasma cell myeloma
     Dosage: FREQUENCY: QD X 14 DAYS THEN 7 DAYS OFF.
     Route: 048
     Dates: start: 20220218
  2. REVLIMID [Suspect]
     Active Substance: LENALIDOMIDE
     Dosage: FREQUENCY: QD X 14 DAYS THEN 7 DAYS OFF.
     Route: 048
     Dates: start: 20220218
  3. REVLIMID [Suspect]
     Active Substance: LENALIDOMIDE
     Dosage: FREQ: 1 DAILY, 3 WEEKS ON 1 WEEK OFF
     Route: 048
     Dates: start: 20220219

REACTIONS (3)
  - White blood cell count decreased [Unknown]
  - Intentional product use issue [Unknown]
  - Platelet count decreased [Unknown]
